FAERS Safety Report 6233862-6 (Version None)
Quarter: 2009Q2

REPORT INFORMATION
  Report Type: 
  Country: None (occurrence: None)
  Receive Date: 20090616
  Receipt Date: 20090616
  Transmission Date: 20091009
  Serious: Yes (Life-Threatening, Hospitalization)
  Sender: FDA-Public Use
  Company Number: None

PATIENT
  Age: 33 Year
  Sex: Male
  Weight: 90.7194 kg

DRUGS (1)
  1. ANTABUSE [Suspect]
     Dosage: UNKNOWN

REACTIONS (11)
  - AGGRESSION [None]
  - ALCOHOL INTOLERANCE [None]
  - BRAIN INJURY [None]
  - DISTURBANCE IN ATTENTION [None]
  - IMPAIRED WORK ABILITY [None]
  - INCORRECT ROUTE OF DRUG ADMINISTRATION [None]
  - INSOMNIA [None]
  - MENTAL IMPAIRMENT [None]
  - NASAL POLYPS [None]
  - POISONING [None]
  - REGRESSIVE BEHAVIOUR [None]
